FAERS Safety Report 15773133 (Version 1)
Quarter: 2018Q4

REPORT INFORMATION
  Report Type: Spontaneous
  Country: TW (occurrence: TW)
  Receive Date: 20181228
  Receipt Date: 20181228
  Transmission Date: 20190205
  Serious: Yes (Other)
  Sender: FDA-Public Use
  Company Number: TW-PFIZER INC-2018366721

PATIENT
  Age: 76 Year
  Sex: Female

DRUGS (3)
  1. ARHEUMA [Concomitant]
     Dosage: UNK
  2. XELJANZ [Suspect]
     Active Substance: TOFACITINIB CITRATE
     Dosage: 5 MG, 2X/DAY
     Route: 048
     Dates: start: 2018
  3. XELJANZ [Suspect]
     Active Substance: TOFACITINIB CITRATE
     Indication: RHEUMATOID ARTHRITIS
     Dosage: 5 MG, 2X/DAY (BID)
     Route: 048
     Dates: start: 201609, end: 20180910

REACTIONS (2)
  - White blood cell count decreased [Not Recovered/Not Resolved]
  - Thermal burn [Unknown]

NARRATIVE: CASE EVENT DATE: 20180906
